FAERS Safety Report 23958922 (Version 11)
Quarter: 2025Q1

REPORT INFORMATION
  Report Type: Spontaneous
  Country: US (occurrence: US)
  Receive Date: 20240611
  Receipt Date: 20250312
  Transmission Date: 20250409
  Serious: Yes (Other)
  Sender: PFIZER
  Company Number: US-PFIZER INC-202400076456

PATIENT
  Age: 68 Year
  Sex: Male

DRUGS (2)
  1. BRAFTOVI [Suspect]
     Active Substance: ENCORAFENIB
     Indication: Malignant melanoma
     Dosage: TAKE 6 CAPSULES (450 MG TOTAL) DAILY/TAKE 6 CAPSULES (450 MG TOTAL) BY MOUTH DAILY.
     Route: 048
  2. MEKTOVI [Suspect]
     Active Substance: BINIMETINIB
     Indication: Malignant melanoma
     Dosage: TAKE 3 TABLETS (45 MG TOTAL) BY MOUTH 2 (TWO) TIMES A DAY
     Route: 048

REACTIONS (1)
  - Patella fracture [Unknown]
